FAERS Safety Report 6763225-6 (Version None)
Quarter: 2010Q2

REPORT INFORMATION
  Report Type: 
  Country: None (occurrence: None)
  Receive Date: 20100609
  Receipt Date: 20100601
  Transmission Date: 20101027
  Serious: Yes (Hospitalization, Other)
  Sender: FDA-Public Use
  Company Number: US-AMGEN-KDL393747

PATIENT
  Sex: Male
  Weight: 95.3 kg

DRUGS (19)
  1. PROCRIT [Suspect]
     Indication: DIALYSIS
  2. ARANESP [Suspect]
     Indication: RENAL TRANSPLANT
     Dates: start: 20090904, end: 20100216
  3. BACTRIM [Suspect]
  4. CAMPATH [Concomitant]
  5. DECADRON [Concomitant]
  6. THYMOGLOBULIN [Concomitant]
  7. TACROLIMUS [Concomitant]
     Dates: start: 20090823
  8. MYCOPHENOLATE MOFETIL [Concomitant]
     Dates: start: 20090823
  9. CYCLOSPORINE [Concomitant]
  10. TOPROL-XL [Concomitant]
     Route: 048
  11. NORVASC [Concomitant]
     Route: 048
  12. MYFORTIC [Concomitant]
     Route: 048
  13. PREDNISONE [Concomitant]
     Route: 048
  14. SULFAMETHOXAZOLE [Concomitant]
     Dates: start: 20090823
  15. TRIMETHOPRIM [Concomitant]
     Dates: start: 20090823
  16. ACETAMINOPHEN AND HYDROCODONE BITARTRATE [Concomitant]
  17. PENTAMIDINE ISETHIONATE [Concomitant]
     Route: 055
  18. ASPIRIN [Concomitant]
     Route: 048
  19. PRILOSEC [Concomitant]
     Route: 048

REACTIONS (11)
  - APLASIA PURE RED CELL [None]
  - ARTERIOVENOUS FISTULA ANEURYSM [None]
  - COMPLICATIONS OF TRANSPLANTED KIDNEY [None]
  - DIARRHOEA [None]
  - DYSPEPSIA [None]
  - HEPATOSPLENOMEGALY [None]
  - KIDNEY FIBROSIS [None]
  - PARATHYROIDECTOMY [None]
  - RENAL ARTERIOSCLEROSIS [None]
  - RENAL TUBULAR NECROSIS [None]
  - TRANSPLANT FAILURE [None]
